FAERS Safety Report 5910043-4 (Version None)
Quarter: 2008Q4

REPORT INFORMATION
  Report Type: 
  Country: None (occurrence: None)
  Receive Date: 20081007
  Receipt Date: 20070928
  Transmission Date: 20090506
  Serious: Yes (Other)
  Sender: FDA-Public Use
  Company Number: US-ASTRAZENECA-2007UW19694

PATIENT
  Age: 62 Year
  Sex: Female
  Weight: 52.6 kg

DRUGS (1)
  1. ARIMIDEX [Suspect]
     Indication: BREAST CANCER
     Route: 048

REACTIONS (3)
  - BREAST PAIN [None]
  - MUSCULOSKELETAL CHEST PAIN [None]
  - POOR QUALITY DRUG ADMINISTERED [None]
